FAERS Safety Report 9377468 (Version 3)
Quarter: 2013Q3

REPORT INFORMATION
  Report Type: Spontaneous
  Country: JP (occurrence: JP)
  Receive Date: 20130701
  Receipt Date: 20130711
  Transmission Date: 20140515
  Serious: Yes (Life-Threatening)
  Sender: FDA-Public Use
  Company Number: JP-JNJFOC-20130619707

PATIENT
  Age: 79 Year
  Sex: Male

DRUGS (9)
  1. FINIBAX [Suspect]
     Indication: SEPTIC SHOCK
     Route: 041
     Dates: start: 20130606, end: 20130616
  2. FINIBAX [Suspect]
     Indication: SEPTIC SHOCK
     Route: 041
  3. LASIX [Concomitant]
     Indication: CARDIAC FAILURE
     Route: 042
     Dates: start: 20130606
  4. NOVASTAN HI [Concomitant]
     Indication: ATRIAL FIBRILLATION
     Route: 041
     Dates: start: 20130610, end: 20130626
  5. DOBUTAMINE HYDROCHLORIDE [Concomitant]
     Indication: SHOCK
     Route: 041
     Dates: start: 20130606, end: 20130613
  6. RECOMODULIN [Concomitant]
     Indication: DISSEMINATED INTRAVASCULAR COAGULATION
     Route: 065
     Dates: start: 20130606, end: 20130613
  7. ALDACTONE A [Concomitant]
     Indication: CARDIAC FAILURE
     Route: 065
     Dates: start: 20130606
  8. MAINTATE [Concomitant]
     Indication: CARDIAC FAILURE
     Route: 065
     Dates: start: 20130608
  9. ISOSORBIDE DINITRATE [Concomitant]
     Indication: MYOCARDIAL ISCHAEMIA
     Route: 065
     Dates: start: 20130613

REACTIONS (3)
  - Grand mal convulsion [Recovering/Resolving]
  - Petit mal epilepsy [Recovering/Resolving]
  - Postictal paralysis [Unknown]
